FAERS Safety Report 21343287 (Version 1)
Quarter: 2022Q3

REPORT INFORMATION
  Report Type: Spontaneous
  Country: US (occurrence: None)
  Receive Date: 20220916
  Receipt Date: 20220916
  Transmission Date: 20221026
  Serious: Yes (Disabling)
  Sender: FDA-Public Use
  Company Number: None

PATIENT
  Age: 54 Year
  Sex: Female
  Weight: 49.05 kg

DRUGS (1)
  1. OZEMPIC [Suspect]
     Active Substance: SEMAGLUTIDE
     Indication: Type 2 diabetes mellitus
     Dates: start: 20201101, end: 20220812

REACTIONS (3)
  - Glycosylated haemoglobin increased [None]
  - Pancreatitis [None]
  - Confusional state [None]

NARRATIVE: CASE EVENT DATE: 20220812
